FAERS Safety Report 18250391 (Version 1)
Quarter: 2020Q3

REPORT INFORMATION
  Report Type: Report from Study
  Country: US (occurrence: US)
  Receive Date: 20200910
  Receipt Date: 20200910
  Transmission Date: 20201103
  Serious: Yes (Other)
  Sender: FDA-Public Use
  Company Number: US-BEH-2020122219

PATIENT
  Age: 69 Year
  Sex: Female
  Weight: 57.14 kg

DRUGS (2)
  1. HIZENTRA [Suspect]
     Active Substance: HUMAN IMMUNOGLOBULIN G
     Route: 058
  2. HIZENTRA [Suspect]
     Active Substance: HUMAN IMMUNOGLOBULIN G
     Dosage: UNK
     Route: 058

REACTIONS (10)
  - Chills [Unknown]
  - Asthenia [Unknown]
  - Contusion [Unknown]
  - Hyperhidrosis [Unknown]
  - Headache [Unknown]
  - Photophobia [Unknown]
  - Muscle fatigue [Unknown]
  - Pain [Unknown]
  - Illness [Unknown]
  - Mobility decreased [Unknown]

NARRATIVE: CASE EVENT DATE: 20200703
